FAERS Safety Report 18628105 (Version 11)
Quarter: 2021Q1

REPORT INFORMATION
  Report Type: Report from Study
  Country: DK (occurrence: DK)
  Receive Date: 20201217
  Receipt Date: 20210315
  Transmission Date: 20210419
  Serious: Yes (Hospitalization)
  Sender: FDA-Public Use
  Company Number: DK-EISAI MEDICAL RESEARCH-EC-2020-085385

PATIENT
  Age: 74 Year
  Sex: Female
  Weight: 48.3 kg

DRUGS (17)
  1. RIVAROXABAN [Concomitant]
     Active Substance: RIVAROXABAN
     Dates: start: 20190516
  2. DOMPERIDONE [Concomitant]
     Active Substance: DOMPERIDONE
     Dates: start: 20191211
  3. IMOLOPE [Concomitant]
     Dates: start: 20200921, end: 20201102
  4. LENVATINIB [Suspect]
     Active Substance: LENVATINIB
     Indication: TRANSITIONAL CELL CARCINOMA
     Dosage: STARTED DOSE AT 20 MG, FLUCTUATED DOSAGE
     Route: 048
     Dates: start: 20191216, end: 20201101
  5. ESTRADIOL. [Concomitant]
     Active Substance: ESTRADIOL
     Dates: start: 20170628
  6. ACETAMINOPHEN. [Concomitant]
     Active Substance: ACETAMINOPHEN
     Dates: start: 20181101
  7. EUTHYROX [Concomitant]
     Active Substance: LEVOTHYROXINE SODIUM
     Dates: start: 20201009, end: 20201119
  8. MILDISON [Concomitant]
     Active Substance: HYDROCORTISONE
     Dates: start: 20200810
  9. PEMBROLIZUMAB. [Suspect]
     Active Substance: PEMBROLIZUMAB
     Route: 042
     Dates: start: 20201102, end: 20201102
  10. AMLODIPINE [Concomitant]
     Active Substance: AMLODIPINE BESYLATE
     Dates: start: 20111027
  11. LOPERAMIDE [Concomitant]
     Active Substance: LOPERAMIDE
     Dates: start: 20200420
  12. LENVATINIB [Suspect]
     Active Substance: LENVATINIB
     Route: 048
     Dates: start: 20201102, end: 20201122
  13. CETRIZIN [Concomitant]
     Dates: start: 20200217
  14. MORPHINE [Concomitant]
     Active Substance: MORPHINE
     Dates: start: 20191211
  15. PEMBROLIZUMAB. [Suspect]
     Active Substance: PEMBROLIZUMAB
     Indication: TRANSITIONAL CELL CARCINOMA
     Route: 042
     Dates: start: 20191216, end: 20201012
  16. UNIKALK FORTE [Concomitant]
     Dates: start: 20181012
  17. BCG VACCINE [Concomitant]
     Active Substance: BCG VACCINE
     Dates: start: 20190930

REACTIONS (1)
  - Vertigo [Not Recovered/Not Resolved]

NARRATIVE: CASE EVENT DATE: 20201105
